FAERS Safety Report 7554996-X (Version None)
Quarter: 2011Q2

REPORT INFORMATION
  Report Type: 
  Country: None (occurrence: None)
  Receive Date: 20110617
  Receipt Date: 20110607
  Transmission Date: 20111010
  Serious: Yes (Death)
  Sender: FDA-Public Use
  Company Number: US-PFIZER INC-2011064844

PATIENT
  Sex: Male
  Weight: 95.2 kg

DRUGS (16)
  1. TAMSULOSIN [Concomitant]
     Dosage: UNK
     Route: 048
     Dates: start: 20080101
  2. METOPROLOL TARTRATE [Concomitant]
     Dosage: UNK
     Route: 048
     Dates: start: 20101127
  3. EZETIMIBE [Concomitant]
     Dosage: UNK
     Route: 048
     Dates: start: 20100401
  4. HYDROCHLOROTHIAZIDE [Concomitant]
     Dosage: UNK
     Route: 048
     Dates: start: 19960101
  5. DULCOLAX [Concomitant]
     Dosage: UNK
     Route: 048
     Dates: start: 20100601
  6. OSTEO BI-FLEX [Concomitant]
     Dosage: UNK
     Route: 048
     Dates: start: 20100401
  7. SODIUM PHOSPHATES [Concomitant]
     Dosage: UNK
     Route: 054
     Dates: start: 20110118
  8. CELECOXIB [Suspect]
     Indication: OSTEOARTHRITIS
     Dosage: 100 MG, 2X/DAY
     Route: 048
     Dates: start: 20101119
  9. MULTI-VITAMINS [Concomitant]
     Dosage: UNK
     Route: 048
     Dates: start: 19800101
  10. DABIGATRAN ETEXILATE [Concomitant]
     Dosage: UNK
     Route: 048
     Dates: start: 20110103
  11. ROSUVASTATIN [Concomitant]
     Dosage: UNK
     Route: 048
     Dates: start: 20080101
  12. AMIODARONE [Concomitant]
     Dosage: UNK
     Route: 048
     Dates: start: 20110103
  13. NEXIUM [Concomitant]
     Dosage: 20 MG, UNK
     Dates: start: 20101119
  14. FEXOFENADINE [Concomitant]
     Dosage: UNK
     Route: 048
     Dates: start: 20080101
  15. ALBUTEROL SULFATE AUTOHALER [Concomitant]
     Dosage: UNK
     Route: 055
     Dates: start: 20101127
  16. NITROSTAT [Concomitant]
     Dosage: UNK
     Route: 048
     Dates: start: 19960101

REACTIONS (1)
  - DEATH [None]
